FAERS Safety Report 17528933 (Version 2)
Quarter: 2020Q2

REPORT INFORMATION
  Report Type: Spontaneous
  Country: FR (occurrence: FR)
  Receive Date: 20200311
  Receipt Date: 20200507
  Transmission Date: 20200713
  Serious: Yes (Hospitalization)
  Sender: FDA-Public Use
  Company Number: FR-MYLANLABS-2020M1025667

PATIENT
  Age: 73 Year
  Sex: Female
  Weight: 61 kg

DRUGS (3)
  1. DICLOFENAC MYLAN [Suspect]
     Active Substance: DICLOFENAC SODIUM
     Indication: TORTICOLLIS
     Dosage: 150 MILLIGRAM, QD
     Route: 048
     Dates: start: 20200121, end: 20200125
  2. FLECTOR                            /00372302/ [Suspect]
     Active Substance: DICLOFENAC SODIUM
     Indication: TORTICOLLIS
     Dosage: 2 APPLICATIONS/JOUR
     Route: 003
     Dates: start: 20200121, end: 20200125
  3. IZALGI [Suspect]
     Active Substance: ACETAMINOPHEN\OPIUM
     Indication: TORTICOLLIS
     Dosage: 1 DOSAGE FORM
     Route: 048
     Dates: start: 20200121, end: 20200125

REACTIONS (2)
  - Hypersensitivity vasculitis [Recovering/Resolving]
  - Vascular purpura [Recovering/Resolving]

NARRATIVE: CASE EVENT DATE: 20200123
